FAERS Safety Report 6054461-5 (Version None)
Quarter: 2009Q1

REPORT INFORMATION
  Report Type: 
  Country: None (occurrence: None)
  Receive Date: 20090123
  Receipt Date: 20090123
  Transmission Date: 20090719
  Serious: No
  Sender: FDA-Public Use
  Company Number: None

PATIENT
  Age: 44 Year
  Sex: Male
  Weight: 70.3075 kg

DRUGS (1)
  1. ZICAM GEL SWAB [Suspect]
     Indication: NASOPHARYNGITIS
     Dosage: TUBE
     Dates: start: 20081125, end: 20081231

REACTIONS (1)
  - ANOSMIA [None]
